FAERS Safety Report 5786780-1 (Version None)
Quarter: 2008Q2

REPORT INFORMATION
  Report Type: 
  Country: None (occurrence: None)
  Receive Date: 20080624
  Receipt Date: 20080616
  Transmission Date: 20081010
  Serious: Yes (Other)
  Sender: FDA-Public Use
  Company Number: GB-AMGEN-US285072

PATIENT
  Sex: Female

DRUGS (6)
  1. ENBREL [Suspect]
     Indication: RHEUMATOID ARTHRITIS
     Route: 058
     Dates: start: 20080502
  2. RANITIDINE HCL [Concomitant]
     Indication: PROPHYLAXIS
     Route: 065
  3. DICLOFENAC SODIUM [Concomitant]
     Indication: PAIN
     Route: 048
  4. ACETAMINOPHEN W/ CODEINE [Concomitant]
     Indication: PAIN
     Dosage: 2 30/500MG CAPSULES 4 TIMES DAILY
     Route: 065
  5. CALCICHEW-D3 FORTE [Concomitant]
     Indication: PROPHYLAXIS
     Route: 048
  6. PREDNISOLONE [Concomitant]
     Indication: ANTIINFLAMMATORY THERAPY
     Route: 048

REACTIONS (4)
  - INJECTION SITE ERYTHEMA [None]
  - INJECTION SITE INDURATION [None]
  - INJECTION SITE PAIN [None]
  - INJECTION SITE PRURITUS [None]
